FAERS Safety Report 11071009 (Version 2)
Quarter: 2015Q3

REPORT INFORMATION
  Report Type: Spontaneous
  Country: CA (occurrence: CA)
  Receive Date: 20150428
  Receipt Date: 20150902
  Transmission Date: 20151125
  Serious: Yes (Other)
  Sender: FDA-Public Use
  Company Number: CA-ROCHE-1567425

PATIENT
  Age: 67 Year
  Sex: Female

DRUGS (5)
  1. TAXOTERE [Suspect]
     Active Substance: DOCETAXEL
     Indication: BREAST CANCER METASTATIC
     Route: 042
  2. PERJETA [Suspect]
     Active Substance: PERTUZUMAB
     Indication: BREAST CANCER METASTATIC
     Dosage: THERAPY DURATION: 1 DAY
     Route: 042
  3. HERCEPTIN [Suspect]
     Active Substance: TRASTUZUMAB
     Indication: BREAST CANCER METASTATIC
     Route: 042
  4. PERJETA [Suspect]
     Active Substance: PERTUZUMAB
     Route: 042
  5. TYLENOL [Suspect]
     Active Substance: ACETAMINOPHEN
     Indication: TOOTHACHE
     Route: 065

REACTIONS (22)
  - Blood pressure increased [Unknown]
  - Hypotension [Unknown]
  - Influenza [Unknown]
  - Tooth infection [Unknown]
  - Uterine prolapse [Unknown]
  - Diarrhoea [Unknown]
  - Laryngitis [Unknown]
  - Pruritus [Unknown]
  - Abdominal discomfort [Unknown]
  - Dyspnoea exertional [Unknown]
  - Oxygen saturation decreased [Unknown]
  - Urogenital prolapse [Unknown]
  - Dysgeusia [Unknown]
  - Lacrimation increased [Unknown]
  - Stomatitis [Unknown]
  - Depression [Unknown]
  - Malaise [Unknown]
  - Memory impairment [Unknown]
  - Muscular weakness [Unknown]
  - Palpitations [Unknown]
  - Toothache [Unknown]
  - Vomiting [Unknown]
